FAERS Safety Report 6935006-1 (Version None)
Quarter: 2010Q3

REPORT INFORMATION
  Report Type: 
  Country: None (occurrence: None)
  Receive Date: 20100822
  Receipt Date: 20100809
  Transmission Date: 20110219
  Serious: Yes (Other)
  Sender: FDA-Public Use
  Company Number: PHHY2010US53097

PATIENT

DRUGS (1)
  1. METHERGINE [Suspect]
     Dosage: MATERNAL DOSE WAS REPORTED AS 14 DOSES OVER 4 DAYS
     Route: 064

REACTIONS (2)
  - DRUG EXPOSURE DURING PREGNANCY [None]
  - PREMATURE BABY [None]
